FAERS Safety Report 8168156-5 (Version None)
Quarter: 2012Q1

REPORT INFORMATION
  Report Type: 
  Country: None (occurrence: None)
  Receive Date: 20120227
  Receipt Date: 20120221
  Transmission Date: 20120608
  Serious: Yes (Other)
  Sender: FDA-Public Use
  Company Number: PHEH2012US002529

PATIENT
  Sex: Female
  Weight: 52 kg

DRUGS (2)
  1. ANTIBIOTICS [Concomitant]
     Dosage: UNK UKN, UNK
  2. GILENYA [Suspect]
     Indication: MULTIPLE SCLEROSIS
     Dosage: 0.5 MG, EVERYDAY
     Route: 048
     Dates: start: 20111028

REACTIONS (6)
  - NAUSEA [None]
  - CHILLS [None]
  - URINARY TRACT INFECTION [None]
  - URINE COLOUR ABNORMAL [None]
  - INFLUENZA LIKE ILLNESS [None]
  - HEADACHE [None]
